FAERS Safety Report 6282997-0 (Version None)
Quarter: 2009Q3

REPORT INFORMATION
  Report Type: 
  Country: None (occurrence: None)
  Receive Date: 20090724
  Receipt Date: 20090721
  Transmission Date: 20100115
  Serious: Yes (Death)
  Sender: FDA-Public Use
  Company Number: PHHY2009EC30407

PATIENT
  Age: 86 Year
  Sex: Male

DRUGS (2)
  1. DIOVAN HCT [Suspect]
     Dosage: UNK
     Route: 048
     Dates: start: 20080625
  2. EXELON [Suspect]
     Dosage: UNK
     Route: 048
     Dates: start: 20040609, end: 20070927

REACTIONS (1)
  - DEATH [None]
